FAERS Safety Report 10407308 (Version 1)
Quarter: 2014Q3

REPORT INFORMATION
  Report Type: Spontaneous
  Country: GB (occurrence: GB)
  Receive Date: 20140825
  Receipt Date: 20140825
  Transmission Date: 20150326
  Serious: Yes (Other)
  Sender: FDA-Public Use
  Company Number: PHHY2014GB101366

PATIENT
  Age: 62 Year
  Sex: Male

DRUGS (13)
  1. ZOPICLONE [Suspect]
     Active Substance: ZOPICLONE
     Dosage: 7.5 MG, UNK
  2. GLIVEC [Suspect]
     Active Substance: IMATINIB MESYLATE
     Indication: CHRONIC MYELOID LEUKAEMIA
  3. CLONAZEPAM. [Suspect]
     Active Substance: CLONAZEPAM
     Dosage: 1 MG, QD
  4. VENLAFAXINE [Suspect]
     Active Substance: VENLAFAXINE HYDROCHLORIDE
     Dosage: 150 MG, UNK
  5. DASATINIB [Suspect]
     Active Substance: DASATINIB
  6. STEROID [Suspect]
     Active Substance: UNSPECIFIED INGREDIENT
     Dates: start: 2011
  7. PROMETHAZINE [Suspect]
     Active Substance: PROMETHAZINE\PROMETHAZINE HYDROCHLORIDE
     Dosage: 50 MG, QD (ONCE NIGHT)
  8. CITALOPRAM [Suspect]
     Active Substance: CITALOPRAM HYDROBROMIDE
  9. VENLAFAXINE [Suspect]
     Active Substance: VENLAFAXINE HYDROCHLORIDE
     Dosage: 225 MG ONCE DAILY
  10. AMILORIDE [Suspect]
     Active Substance: AMILORIDE
  11. VENLAFAXINE [Suspect]
     Active Substance: VENLAFAXINE HYDROCHLORIDE
     Dosage: 150 MG, UNK
  12. NILOTINIB [Suspect]
     Active Substance: NILOTINIB
     Indication: CHRONIC MYELOID LEUKAEMIA
     Dosage: 100 MG/DAY
  13. DASATINIB [Suspect]
     Active Substance: DASATINIB
     Indication: CHRONIC MYELOID LEUKAEMIA
     Dosage: 25 MG/DAY, ON ALTERNATE WEEKS FOR THE LAST YEAR

REACTIONS (19)
  - Hallucination [Recovered/Resolved]
  - Insomnia [Unknown]
  - Depression [Recovered/Resolved]
  - Skin exfoliation [Recovered/Resolved]
  - Swelling [Recovered/Resolved]
  - Hypomania [Recovered/Resolved]
  - Therapeutic response decreased [Unknown]
  - Speech disorder [Recovered/Resolved]
  - Restlessness [Recovered/Resolved]
  - Agitation [Recovered/Resolved]
  - Abdominal pain upper [Recovered/Resolved]
  - General physical health deterioration [Recovered/Resolved]
  - Dermatitis exfoliative [Recovered/Resolved]
  - Overdose [Unknown]
  - Pleural effusion [Recovered/Resolved]
  - Dry mouth [Not Recovered/Not Resolved]
  - Blister [Recovered/Resolved]
  - Mental impairment [Recovered/Resolved]
  - Depressed mood [Recovered/Resolved]
